FAERS Safety Report 20425566 (Version 1)
Quarter: 2022Q1

REPORT INFORMATION
  Report Type: Spontaneous
  Country: NL (occurrence: NL)
  Receive Date: 20220204
  Receipt Date: 20220204
  Transmission Date: 20220424
  Serious: Yes (Other)
  Sender: FDA-Public Use
  Company Number: NL-LRB-00779065

PATIENT
  Sex: Male
  Weight: 160 kg

DRUGS (3)
  1. CARVEDILOL [Suspect]
     Active Substance: CARVEDILOL
     Indication: Atrial fibrillation
     Dosage: 12.5 MILLIGRAM, TWO TIMES A DAY
     Route: 065
     Dates: start: 20211222
  2. LANOXIN DIGOXINA [Concomitant]
     Indication: Product used for unknown indication
     Dosage: 0.25 MILLIGRAM/MILILITER (INJECTION FLUID)
     Route: 065
  3. EDOXABAN [Concomitant]
     Active Substance: EDOXABAN
     Indication: Product used for unknown indication
     Dosage: 60 MILLIGRAM
     Route: 065

REACTIONS (1)
  - Hallucination, visual [Recovered/Resolved]
